FAERS Safety Report 19984018 (Version 1)
Quarter: 2021Q4

REPORT INFORMATION
  Report Type: Spontaneous
  Country: NL (occurrence: NL)
  Receive Date: 20211021
  Receipt Date: 20211021
  Transmission Date: 20220304
  Serious: Yes (Hospitalization)
  Sender: FDA-Public Use
  Company Number: NL-ABBVIE-21K-114-4129614-00

PATIENT
  Age: 29 Year
  Sex: Male
  Weight: 73 kg

DRUGS (3)
  1. VALPROATE SODIUM [Suspect]
     Active Substance: VALPROATE SODIUM
     Indication: Bipolar disorder
     Route: 048
     Dates: start: 20190201
  2. VALPROATE SODIUM [Suspect]
     Active Substance: VALPROATE SODIUM
     Dosage: UNKNOWN DOSE
     Route: 048
  3. QUETIAPINE [Concomitant]
     Active Substance: QUETIAPINE
     Indication: Product used for unknown indication

REACTIONS (3)
  - Dysphagia [Recovered/Resolved with Sequelae]
  - Anxiety [Recovered/Resolved with Sequelae]
  - Depression [Recovered/Resolved with Sequelae]

NARRATIVE: CASE EVENT DATE: 20190201
